FAERS Safety Report 15288162 (Version 1)
Quarter: 2018Q3

REPORT INFORMATION
  Report Type: Report from Study
  Country: US (occurrence: US)
  Receive Date: 20180817
  Receipt Date: 20180817
  Transmission Date: 20181010
  Serious: Yes (Other)
  Sender: FDA-Public Use
  Company Number: US-ROCHE-2168593

PATIENT

DRUGS (4)
  1. METFORMIN [Suspect]
     Active Substance: METFORMIN HYDROCHLORIDE
     Indication: LUNG ADENOCARCINOMA
     Route: 065
  2. CARBOPLATIN. [Suspect]
     Active Substance: CARBOPLATIN
     Indication: LUNG ADENOCARCINOMA
     Dosage: AREA UNDER CURVE? 6 MG/ML/MIN?FOR FOUR TO SIX 21?DAY CYCLES
     Route: 042
  3. PACLITAXEL. [Suspect]
     Active Substance: PACLITAXEL
     Indication: LUNG ADENOCARCINOMA
     Dosage: FOR FOUR TO SIX 21?DAY CYCLES
     Route: 042
  4. BEVACIZUMAB. [Suspect]
     Active Substance: BEVACIZUMAB
     Indication: LUNG ADENOCARCINOMA
     Dosage: FOR FOUR TO SIX 21?DAY CYCLES FOLLOWED BY BEVACIZUMAB (15 MG/KG) MAINTENANCE EVERY 21 DAYS
     Route: 042

REACTIONS (23)
  - Hypokalaemia [Unknown]
  - Infusion related reaction [Unknown]
  - Vomiting [Unknown]
  - Back pain [Unknown]
  - Hyperglycaemia [Unknown]
  - Hyponatraemia [Unknown]
  - Dehydration [Unknown]
  - Appendicitis [Unknown]
  - Nausea [Unknown]
  - Insomnia [Unknown]
  - Hypertension [Unknown]
  - Embolism [Unknown]
  - Neutrophil count decreased [Unknown]
  - White blood cell count decreased [Unknown]
  - Hypophosphataemia [Unknown]
  - Headache [Unknown]
  - Neuropathy peripheral [Unknown]
  - Arthralgia [Unknown]
  - Lymphocyte count decreased [Unknown]
  - Bone pain [Unknown]
  - Sepsis [Unknown]
  - Febrile neutropenia [Unknown]
  - Pain in extremity [Unknown]
